FAERS Safety Report 13100998 (Version 3)
Quarter: 2018Q1

REPORT INFORMATION
  Report Type: Report from Study
  Country: JP (occurrence: JP)
  Receive Date: 20170110
  Receipt Date: 20180104
  Transmission Date: 20180508
  Serious: Yes (Life-Threatening, Hospitalization)
  Sender: FDA-Public Use
  Company Number: JP-PFIZER INC-2017005113

PATIENT
  Age: 42 Year
  Sex: Female
  Weight: 82 kg

DRUGS (3)
  1. SUREPOST [Concomitant]
     Active Substance: REPAGLINIDE
     Dosage: UNK
     Dates: start: 20160614
  2. LIRAGLUTIDE FLEXPEN (LIRAGLUTIDE) [Suspect]
     Active Substance: LIRAGLUTIDE
     Indication: TYPE 2 DIABETES MELLITUS
     Dosage: 1.8 MG, 1X/DAY
     Route: 058
     Dates: start: 20160909, end: 20161218
  3. TRIAZOLAM. [Suspect]
     Active Substance: TRIAZOLAM
     Indication: INSOMNIA
     Dosage: UNK
     Route: 048
     Dates: start: 20160826, end: 20161218

REACTIONS (1)
  - Suicide attempt [Recovered/Resolved]

NARRATIVE: CASE EVENT DATE: 20161218
